FAERS Safety Report 11912548 (Version 1)
Quarter: 2016Q1

REPORT INFORMATION
  Report Type: Spontaneous
  Country: US (occurrence: US)
  Receive Date: 20160113
  Receipt Date: 20160113
  Transmission Date: 20160526
  Serious: Yes (Other)
  Sender: FDA-Public Use
  Company Number: US-ZYDUS-009965

PATIENT
  Age: 75 Year
  Sex: Female

DRUGS (5)
  1. ANTITHYMOCYTE IMMUNOGLOBULIN [Suspect]
     Active Substance: THYMOCYTE IMMUNE GLOBULIN NOS
     Indication: IMMUNOSUPPRESSION
     Dosage: 5 MG/KG OVER 3 DAYS
  2. TACROLIMUS. [Suspect]
     Active Substance: TACROLIMUS
     Indication: DELAYED GRAFT FUNCTION
     Dosage: 2 MG DAILY
  3. PREDNISONE. [Suspect]
     Active Substance: PREDNISONE
     Indication: IMMUNOSUPPRESSION
     Dosage: 5 MG DAILY
     Route: 048
  4. AZATHIOPRINE. [Suspect]
     Active Substance: AZATHIOPRINE
     Indication: IMMUNOSUPPRESSION
     Dosage: 150 MG DAILY, REDUCED TO 100 MG DAILY
     Route: 048
  5. METHYLPREDNISOLONE. [Suspect]
     Active Substance: METHYLPREDNISOLONE
     Indication: IMMUNOSUPPRESSANT DRUG THERAPY
     Dosage: 500 MG INTRA-OPERATIVELY

REACTIONS (2)
  - Thrombotic microangiopathy [Recovered/Resolved]
  - Cytomegalovirus viraemia [Recovered/Resolved]
